FAERS Safety Report 8828265 (Version 3)
Quarter: 2013Q2

REPORT INFORMATION
  Report Type: Spontaneous
  Country: DE (occurrence: DE)
  Receive Date: 20121005
  Receipt Date: 20130521
  Transmission Date: 20140414
  Serious: Yes (Death, Life-Threatening, Hospitalization)
  Sender: FDA-Public Use
  Company Number: DE-AMGEN-DEUSP2012062065

PATIENT
  Age: 72 Year
  Sex: Female

DRUGS (7)
  1. ENBREL [Suspect]
     Indication: RHEUMATOID ARTHRITIS
     Dosage: 50 MG, UNK
     Dates: start: 20080911, end: 20120725
  2. NOVORAPID [Concomitant]
     Dosage: UNK UNK, UNK
  3. NOVORAPID [Concomitant]
     Dosage: UNK
  4. KARVEA [Concomitant]
     Dosage: UNK UNK, UNK
  5. KARVEA [Concomitant]
     Dosage: UNK
  6. METHIZOL [Concomitant]
     Dosage: UNK
  7. AMLODIPINE [Concomitant]
     Dosage: UNK

REACTIONS (3)
  - Lung neoplasm malignant [Fatal]
  - Bronchitis [Unknown]
  - Bronchial carcinoma [Fatal]
